FAERS Safety Report 24080154 (Version 1)
Quarter: 2024Q3

REPORT INFORMATION
  Report Type: Spontaneous
  Country: US (occurrence: US)
  Receive Date: 20240711
  Receipt Date: 20240711
  Transmission Date: 20241017
  Serious: No
  Sender: BIOGEN
  Company Number: US-BIOGEN-2020BI00923921

PATIENT
  Sex: Female

DRUGS (1)
  1. TYSABRI [Suspect]
     Active Substance: NATALIZUMAB
     Indication: Multiple sclerosis
     Route: 050
     Dates: start: 20160212

REACTIONS (4)
  - Prescribed underdose [Unknown]
  - Drug ineffective [Unknown]
  - Central nervous system lesion [Unknown]
  - Secondary progressive multiple sclerosis [Unknown]
